FAERS Safety Report 21128806 (Version 1)
Quarter: 2022Q3

REPORT INFORMATION
  Report Type: Other
  Country: KR (occurrence: None)
  Receive Date: 20220725
  Receipt Date: 20220725
  Transmission Date: 20221027
  Serious: Yes (Other)
  Sender: FDA-Public Use
  Company Number: KR-ROCHE-2682969

PATIENT
  Age: 67 Year
  Sex: Male
  Weight: 67 kg

DRUGS (12)
  1. ATEZOLIZUMAB [Suspect]
     Active Substance: ATEZOLIZUMAB
     Indication: Transitional cell carcinoma
     Dosage: SUBSEQUENT DOSE ON 09/SEP/2020, 07/OCT/2020, 29/OCT/2020, 19/NOV/2020, 10/DEC/2020, 31/DEC/2020, 08/
     Route: 041
     Dates: start: 20200824
  2. MYPOL (SOUTH KOREA) [Concomitant]
     Indication: Back pain
     Dates: start: 20200909
  3. LYRICA [Concomitant]
     Active Substance: PREGABALIN
     Indication: Back pain
     Dates: start: 20200909
  4. ACETAMINOPHEN [Concomitant]
     Active Substance: ACETAMINOPHEN
     Indication: Back pain
     Dates: start: 20200909
  5. LOPERAMIDE [Concomitant]
     Active Substance: LOPERAMIDE
     Dates: start: 20200824
  6. BESZYME [Concomitant]
     Indication: Prophylaxis
     Dates: start: 20201007
  7. METOCLOPRAMIDE HYDROCHLORIDE [Concomitant]
     Active Substance: METOCLOPRAMIDE HYDROCHLORIDE
     Indication: Vomiting
     Dates: start: 20200824
  8. MAGNESIUM OXIDE [Concomitant]
     Active Substance: MAGNESIUM OXIDE
     Indication: Pain
     Dates: start: 20200824
  9. APIQUIS [Concomitant]
     Indication: Venous thrombosis
     Dates: start: 20200824
  10. EBASTINE [Concomitant]
     Active Substance: EBASTINE
     Dates: start: 20200928
  11. ENTELON [Concomitant]
     Indication: Lymphoedema
     Dates: start: 20210525
  12. MEDIAVEN L [Concomitant]
     Indication: Peripheral venous disease
     Dates: start: 20210525

REACTIONS (9)
  - Decreased appetite [Recovering/Resolving]
  - Constipation [Recovering/Resolving]
  - Pruritus [Recovering/Resolving]
  - Oropharyngeal pain [Recovering/Resolving]
  - Oedema peripheral [Recovering/Resolving]
  - External ear pain [Recovered/Resolved]
  - Pyrexia [Recovered/Resolved]
  - Deep vein thrombosis [Unknown]
  - Dyspepsia [Recovering/Resolving]

NARRATIVE: CASE EVENT DATE: 20200909
